FAERS Safety Report 4678829-4 (Version None)
Quarter: 2005Q2

REPORT INFORMATION
  Report Type: 
  Country: None (occurrence: None)
  Receive Date: 20050531
  Receipt Date: 20050518
  Transmission Date: 20051028
  Serious: Yes (Hospitalization)
  Sender: FDA-Public Use
  Company Number: 2005SP000774

PATIENT
  Age: 73 Year
  Sex: Male
  Weight: 87.5442 kg

DRUGS (13)
  1. LUNESTA [Suspect]
     Indication: INSOMNIA
     Dosage: 1 MG; HS; ORAL
     Route: 048
     Dates: start: 20050429, end: 20050429
  2. ZOCOR [Concomitant]
  3. ELAVIL [Concomitant]
  4. ZANTAC [Concomitant]
  5. IMDAR [Concomitant]
  6. ATENOLOL [Concomitant]
  7. COUMADIN [Concomitant]
  8. NITRO QUICK [Concomitant]
  9. NORVASC [Concomitant]
  10. METHOTREXATE [Concomitant]
  11. FOLIC ACID [Concomitant]
  12. ULTRACET [Concomitant]
  13. PREDNISONE TAB [Concomitant]

REACTIONS (5)
  - BODY TEMPERATURE INCREASED [None]
  - CHEST PAIN [None]
  - CHOLECYSTITIS [None]
  - CHOLELITHIASIS [None]
  - STREPTOCOCCAL BACTERAEMIA [None]
